FAERS Safety Report 10243274 (Version 1)
Quarter: 2014Q2

REPORT INFORMATION
  Report Type: Spontaneous
  Country: DE (occurrence: DE)
  Receive Date: 20140618
  Receipt Date: 20140618
  Transmission Date: 20141212
  Serious: Yes (Other)
  Sender: FDA-Public Use
  Company Number: DE-MYLANLABS-2014S1013460

PATIENT
  Age: 61 Year
  Sex: Female

DRUGS (2)
  1. CITALOPRAM [Suspect]
     Indication: DEPRESSION
     Dates: start: 20140603, end: 20140603
  2. LEXOTANIL [Concomitant]
     Indication: MOOD DISORDER DUE TO A GENERAL MEDICAL CONDITION

REACTIONS (6)
  - Depression [Recovering/Resolving]
  - Apathy [Recovering/Resolving]
  - Asthenia [Recovering/Resolving]
  - Nausea [Recovering/Resolving]
  - Suicidal ideation [Recovering/Resolving]
  - Activities of daily living impaired [Recovering/Resolving]
